FAERS Safety Report 8033720-0 (Version None)
Quarter: 2012Q1

REPORT INFORMATION
  Report Type: 
  Country: None (occurrence: None)
  Receive Date: 20120110
  Receipt Date: 20120104
  Transmission Date: 20120608
  Serious: Yes (Death)
  Sender: FDA-Public Use
  Company Number: US-GLAXOSMITHKLINE-A0959920A

PATIENT
  Age: 67 Year
  Sex: Male

DRUGS (6)
  1. AMOXICILLIN [Concomitant]
  2. PREDNISONE TAB [Concomitant]
  3. ADVAIR DISKUS 100/50 [Suspect]
     Indication: ASTHMA
     Dosage: 1PUFF TWICE PER DAY
     Route: 055
  4. XANAX [Concomitant]
  5. VICODIN [Concomitant]
  6. COMBIVENT [Concomitant]

REACTIONS (4)
  - UPPER LIMB FRACTURE [None]
  - CONTUSION [None]
  - THROMBOSIS [None]
  - FALL [None]
